FAERS Safety Report 6872103-3 (Version None)
Quarter: 2010Q3

REPORT INFORMATION
  Report Type: 
  Country: None (occurrence: None)
  Receive Date: 20100723
  Receipt Date: 20100713
  Transmission Date: 20110219
  Serious: Yes (Death)
  Sender: FDA-Public Use
  Company Number: US-PFIZER INC-2010065417

PATIENT
  Sex: Male

DRUGS (11)
  1. REVATIO [Suspect]
     Indication: PULMONARY HYPERTENSION
     Dosage: 20 MG, 3X/DAY
     Route: 048
  2. ALDACTONE [Concomitant]
  3. METOPROLOL [Concomitant]
  4. NOVOLIN [Concomitant]
  5. LACTULOSE [Concomitant]
  6. LASIX [Concomitant]
  7. MULTI-VITAMINS [Concomitant]
  8. MEPHYTON [Concomitant]
  9. THIAMINE [Concomitant]
  10. ALBUTEROL [Concomitant]
  11. TESSALON [Concomitant]

REACTIONS (3)
  - CARDIO-RESPIRATORY ARREST [None]
  - ELECTROMECHANICAL DISSOCIATION [None]
  - OESOPHAGEAL VARICES HAEMORRHAGE [None]
